FAERS Safety Report 5315645-4 (Version None)
Quarter: 2007Q2

REPORT INFORMATION
  Report Type: 
  Country: None (occurrence: None)
  Receive Date: 20070430
  Receipt Date: 20070430
  Transmission Date: 20071010
  Serious: Yes (Hospitalization)
  Sender: FDA-Public Use
  Company Number: None

PATIENT
  Sex: Female
  Weight: 42.1 kg

DRUGS (4)
  1. CISPLATIN [Suspect]
     Dosage: 65 MG
  2. DOXORUBICIN HYDROCHLORIDE [Suspect]
     Dosage: 58 MG
  3. G-CSF (FILGRASTIM, AMGEN) [Suspect]
     Dosage: 6 MG
  4. TAXOL [Suspect]
     Dosage: 208 MG

REACTIONS (7)
  - ASTHENIA [None]
  - CULTURE URINE POSITIVE [None]
  - HAEMOGLOBIN DECREASED [None]
  - ORAL INTAKE REDUCED [None]
  - PLATELET COUNT DECREASED [None]
  - PYREXIA [None]
  - WHITE BLOOD CELL COUNT DECREASED [None]
